FAERS Safety Report 9836857 (Version 1)
Quarter: 2014Q1

REPORT INFORMATION
  Report Type: Spontaneous
  Country: US (occurrence: None)
  Receive Date: 20140116
  Receipt Date: 20140116
  Transmission Date: 20141002
  Serious: Yes (Death)
  Sender: FDA-Public Use
  Company Number: None

PATIENT
  Sex: Female

DRUGS (2)
  1. TARCEVA 100 MG GENENTECH [Suspect]
     Route: 048
     Dates: start: 20131011, end: 20140115
  2. TARCEVA 150 MG GENENTECH [Suspect]
     Route: 048
     Dates: start: 20130925, end: 20131010

REACTIONS (3)
  - Death [None]
  - Disease progression [None]
  - Unevaluable event [None]
